FAERS Safety Report 5896310-1 (Version None)
Quarter: 2008Q3

REPORT INFORMATION
  Report Type: 
  Country: None (occurrence: None)
  Receive Date: 20080924
  Receipt Date: 20070913
  Transmission Date: 20090109
  Serious: Yes (Other)
  Sender: FDA-Public Use
  Company Number: US-ASTRAZENECA-2007UW19436

PATIENT
  Age: 36 Year
  Sex: Female

DRUGS (6)
  1. SEROQUEL [Suspect]
     Indication: BIPOLAR I DISORDER
     Route: 048
     Dates: start: 20070801, end: 20070809
  2. CYTOMEL [Concomitant]
     Indication: HYPOTHYROIDISM
  3. SYNTHROID [Concomitant]
     Indication: HYPOTHYROIDISM
  4. AMBIEN [Concomitant]
     Indication: INSOMNIA
  5. ULTRAM [Concomitant]
  6. PRILOSEC [Concomitant]

REACTIONS (7)
  - ANXIETY [None]
  - EXCORIATION [None]
  - GRAND MAL CONVULSION [None]
  - HEADACHE [None]
  - HYPERVENTILATION [None]
  - PANIC ATTACK [None]
  - THROAT IRRITATION [None]
